FAERS Safety Report 7005672-3 (Version None)
Quarter: 2010Q3

REPORT INFORMATION
  Report Type: 
  Country: None (occurrence: None)
  Receive Date: 20100921
  Receipt Date: 20100915
  Transmission Date: 20110219
  Serious: Yes (Hospitalization)
  Sender: FDA-Public Use
  Company Number: B0674543A

PATIENT
  Age: 36 Year
  Sex: Male

DRUGS (2)
  1. ACICLOVIR [Suspect]
  2. PREDNISOLONE [Concomitant]

REACTIONS (4)
  - ABDOMINAL PAIN [None]
  - ACIDOSIS [None]
  - INTESTINAL OBSTRUCTION [None]
  - VOMITING [None]
